FAERS Safety Report 6825164-1 (Version None)
Quarter: 2010Q3

REPORT INFORMATION
  Report Type: 
  Country: None (occurrence: None)
  Receive Date: 20100708
  Receipt Date: 20070104
  Transmission Date: 20110219
  Serious: No
  Sender: FDA-Public Use
  Company Number: US-PFIZER INC-2007002268

PATIENT
  Sex: Female

DRUGS (5)
  1. CHANTIX [Suspect]
     Dates: start: 20070101
  2. SPIRIVA [Concomitant]
  3. ADVAIR DISKUS 100/50 [Concomitant]
  4. VICODIN [Concomitant]
  5. ALBUTEROL [Concomitant]

REACTIONS (2)
  - DYSGEUSIA [None]
  - NAUSEA [None]
